FAERS Safety Report 9124421 (Version 1)
Quarter: 2013Q1

REPORT INFORMATION
  Report Type: Spontaneous
  Country: FR (occurrence: FR)
  Receive Date: 20130227
  Receipt Date: 20130227
  Transmission Date: 20140127
  Serious: Yes (Hospitalization, Other)
  Sender: FDA-Public Use
  Company Number: FR-009507513-1302FRA007907

PATIENT
  Age: 22 Year
  Sex: Female

DRUGS (3)
  1. NEXPLANON [Suspect]
     Dosage: UNK
     Dates: start: 20121003
  2. LYSANXIA [Concomitant]
  3. DEROXAT [Concomitant]

REACTIONS (1)
  - Hemiplegia [Recovered/Resolved]
